FAERS Safety Report 11864541 (Version 2)
Quarter: 2015Q4

REPORT INFORMATION
  Report Type: Spontaneous
  Country: US (occurrence: US)
  Receive Date: 20151223
  Receipt Date: 20151230
  Transmission Date: 20160305
  Serious: No
  Sender: FDA-Public Use
  Company Number: US-EISAI MEDICAL RESEARCH-EC-2015-012910

PATIENT
  Sex: Male

DRUGS (8)
  1. FYCOMPA [Suspect]
     Active Substance: PERAMPANEL
     Dosage: UPTITRATION (DOSE UNKNOWN)
     Route: 051
     Dates: start: 201503, end: 201508
  2. FYCOMPA [Suspect]
     Active Substance: PERAMPANEL
     Route: 051
     Dates: start: 201508, end: 20151217
  3. BANZEL [Concomitant]
     Active Substance: RUFINAMIDE
     Indication: LENNOX-GASTAUT SYNDROME
     Route: 065
     Dates: start: 2012
  4. TOPAMAX [Concomitant]
     Active Substance: TOPIRAMATE
     Indication: LENNOX-GASTAUT SYNDROME
     Route: 065
  5. ONFI [Concomitant]
     Active Substance: CLOBAZAM
     Indication: LENNOX-GASTAUT SYNDROME
     Dosage: 20MG IN THE MORNING, 10MG MID-DAY AND 20MG IN THE EVENING
     Route: 065
  6. FYCOMPA [Suspect]
     Active Substance: PERAMPANEL
     Indication: LENNOX-GASTAUT SYNDROME
     Route: 051
     Dates: start: 201411, end: 201503
  7. FYCOMPA [Suspect]
     Active Substance: PERAMPANEL
     Route: 051
     Dates: start: 20151218
  8. KEPPRA [Concomitant]
     Active Substance: LEVETIRACETAM
     Indication: LENNOX-GASTAUT SYNDROME
     Route: 065

REACTIONS (1)
  - Rash [Not Recovered/Not Resolved]

NARRATIVE: CASE EVENT DATE: 2015
